FAERS Safety Report 8531188-9 (Version None)
Quarter: 2012Q3

REPORT INFORMATION
  Report Type: 
  Country: None (occurrence: None)
  Receive Date: 20120723
  Receipt Date: 20120710
  Transmission Date: 20120928
  Serious: Yes (Other)
  Sender: FDA-Public Use
  Company Number: ES-ELI_LILLY_AND_COMPANY-ES201207003126

PATIENT
  Age: 65 Year
  Sex: Male
  Weight: 72 kg

DRUGS (4)
  1. HUMALOG MIX 75/25 [Suspect]
     Dosage: 16 U, TID
  2. HUMALOG MIX 75/25 [Suspect]
     Dosage: 18 U, QD
  3. LANTUS [Concomitant]
     Dosage: 14 IU, EACH EVENING
  4. HUMALOG MIX 75/25 [Suspect]
     Dosage: 2 U, EACH MORNING

REACTIONS (6)
  - MUSCULOSKELETAL STIFFNESS [None]
  - ATRIAL FIBRILLATION [None]
  - BLOOD PRESSURE INCREASED [None]
  - BLOOD GLUCOSE INCREASED [None]
  - ARTHRALGIA [None]
  - DRUG INEFFECTIVE [None]
